FAERS Safety Report 8732525 (Version 2)
Quarter: 2015Q2

REPORT INFORMATION
  Report Type: Report from Study
  Country: US (occurrence: US)
  Receive Date: 20120820
  Receipt Date: 20150626
  Transmission Date: 20150821
  Serious: Yes (Hospitalization)
  Sender: FDA-Public Use
  Company Number: US-ROCHE-1101480

PATIENT
  Age: 48 Year
  Sex: Female

DRUGS (14)
  1. ACTIVASE [Suspect]
     Active Substance: ALTEPLASE
     Indication: ACUTE MYOCARDIAL INFARCTION
     Route: 042
  2. HUMULIN NOS [Concomitant]
     Active Substance: INSULIN HUMAN
     Dosage: 20UNIT IN AM 10UNIT IN PM
     Route: 065
  3. LOPRESSOR [Concomitant]
     Active Substance: METOPROLOL TARTRATE
     Route: 065
  4. PRILOSEC [Concomitant]
     Active Substance: OMEPRAZOLE MAGNESIUM
     Route: 065
  5. HYGROTON [Concomitant]
     Active Substance: CHLORTHALIDONE
     Route: 048
  6. HUMULIN NOS [Concomitant]
     Active Substance: INSULIN HUMAN
     Dosage: 60UNIT AM AND 32UNIT PM
     Route: 065
  7. ISORDIL [Concomitant]
     Active Substance: ISOSORBIDE DINITRATE
  8. BUSPAR [Concomitant]
     Active Substance: BUSPIRONE HYDROCHLORIDE
     Route: 048
  9. ASPIRIN. [Concomitant]
     Active Substance: ASPIRIN
     Route: 048
  10. BENADRYL [Concomitant]
     Active Substance: DIPHENHYDRAMINE HYDROCHLORIDE
     Route: 065
  11. HUMULIN NOS [Concomitant]
     Active Substance: INSULIN HUMAN
     Dosage: 36UNIT AND 18 UNIT PM
     Route: 065
  12. ACTIVASE [Suspect]
     Active Substance: ALTEPLASE
     Route: 042
  13. INSULIN [Concomitant]
     Active Substance: INSULIN NOS
     Dosage: 40UNIT AM AND 20UNIT PM
     Route: 065
  14. CATAPRES [Concomitant]
     Active Substance: CLONIDINE HYDROCHLORIDE
     Route: 048

REACTIONS (5)
  - Pyrexia [Unknown]
  - Dyspepsia [Unknown]
  - Ventricular tachycardia [Unknown]
  - Abdominal pain upper [Unknown]
  - Hiatus hernia [Unknown]
